FAERS Safety Report 5215551-X (Version None)
Quarter: 2007Q1

REPORT INFORMATION
  Report Type: 
  Country: None (occurrence: None)
  Receive Date: 20070117
  Receipt Date: 20070109
  Transmission Date: 20070707
  Serious: Yes (Other)
  Sender: FDA-Public Use
  Company Number: 2007SP000427

PATIENT
  Age: 70 Year
  Sex: Female
  Weight: 73 kg

DRUGS (9)
  1. NITRO-DUR [Suspect]
     Indication: DRUG USE FOR UNKNOWN INDICATION
     Dosage: 0.4 MG; QH; TOP
     Route: 061
  2. METOPROLOL TARTRATE [Concomitant]
  3. ASAPHEN [Concomitant]
  4. SLOW-K [Concomitant]
  5. AVANDIA [Concomitant]
  6. SEROQUEL [Concomitant]
  7. LORAZEPAM [Concomitant]
  8. ALTACE [Concomitant]
  9. GLYBURIDE [Concomitant]

REACTIONS (2)
  - APPLICATION SITE REACTION [None]
  - RASH [None]
